FAERS Safety Report 9408784 (Version 1)
Quarter: 2013Q3

REPORT INFORMATION
  Report Type: Spontaneous
  Country: US (occurrence: US)
  Receive Date: 20130719
  Receipt Date: 20130719
  Transmission Date: 20140515
  Serious: Yes (Other)
  Sender: FDA-Public Use
  Company Number: US-AMGEN-USASP2013049749

PATIENT
  Age: 67 Year
  Sex: Female

DRUGS (2)
  1. EPOGEN [Suspect]
     Indication: RENAL FAILURE CHRONIC
     Dosage: 500 UNIT, UNK
     Route: 065
  2. ARANESP [Suspect]
     Indication: RENAL FAILURE CHRONIC
     Dosage: UNK
     Route: 065

REACTIONS (9)
  - Cardiac failure congestive [Unknown]
  - Drug intolerance [Unknown]
  - Malaise [Unknown]
  - Feeling abnormal [Unknown]
  - Speech disorder [Unknown]
  - Adverse event [Unknown]
  - Vomiting [Unknown]
  - Local swelling [Unknown]
  - Hypertension [Unknown]
